FAERS Safety Report 21633897 (Version 1)
Quarter: 2022Q4

REPORT INFORMATION
  Report Type: Spontaneous
  Country: US (occurrence: US)
  Receive Date: 20221123
  Receipt Date: 20221123
  Transmission Date: 20230113
  Serious: Yes (Death, Other)
  Sender: FDA-Public Use
  Company Number: US-PFIZER INC-202201318263

PATIENT
  Sex: Female

DRUGS (1)
  1. ALDACTONE [Suspect]
     Active Substance: SPIRONOLACTONE
     Indication: Rheumatoid arthritis
     Dosage: UNK

REACTIONS (3)
  - Immunodeficiency [Fatal]
  - Off label use [Unknown]
  - Drug ineffective for unapproved indication [Unknown]
